FAERS Safety Report 7018252-0 (Version None)
Quarter: 2010Q3

REPORT INFORMATION
  Report Type: 
  Country: None (occurrence: None)
  Receive Date: 20100928
  Receipt Date: 20100916
  Transmission Date: 20110219
  Serious: Yes (Hospitalization)
  Sender: FDA-Public Use
  Company Number: US-SANOFI-AVENTIS-2010SA055925

PATIENT
  Age: 84 Year
  Sex: Male

DRUGS (7)
  1. PLAVIX [Suspect]
     Indication: ANTIPLATELET THERAPY
     Route: 048
     Dates: start: 20081218, end: 20081218
  2. PLAVIX [Suspect]
     Route: 048
     Dates: start: 20081219, end: 20081219
  3. PLAVIX [Suspect]
     Route: 048
     Dates: start: 20081219, end: 20090617
  4. ASPIRIN [Concomitant]
     Route: 048
  5. BETA BLOCKING AGENTS [Concomitant]
  6. HMG COA REDUCTASE INHIBITORS [Concomitant]
  7. OMEPRAZOLE [Concomitant]

REACTIONS (1)
  - GASTROOESOPHAGEAL REFLUX DISEASE [None]
